FAERS Safety Report 6369855-8 (Version None)
Quarter: 2009Q3

REPORT INFORMATION
  Report Type: 
  Country: None (occurrence: None)
  Receive Date: 20090923
  Receipt Date: 20070913
  Transmission Date: 20100115
  Serious: Yes (Other)
  Sender: FDA-Public Use
  Company Number: US-ASTRAZENECA-2006UW11705

PATIENT
  Age: 679 Month
  Sex: Female
  Weight: 113.4 kg

DRUGS (15)
  1. SEROQUEL [Suspect]
     Indication: MENTAL DISORDER
     Dosage: 25 MG, 50 MG
     Route: 048
     Dates: start: 20060213
  2. SEROQUEL [Suspect]
     Dosage: 25 MG NOON, 100 MG NIGHT
     Route: 048
     Dates: start: 20060313
  3. SEROQUEL [Suspect]
     Dosage: 25 MG DAILY 2, 100 MG DAILY 1
     Route: 048
     Dates: start: 20060719
  4. SEROQUEL [Suspect]
     Dosage: 25MG, 100MG
     Route: 048
     Dates: end: 20060101
  5. ABILIFY [Concomitant]
  6. GEODON [Concomitant]
     Dates: start: 20050101, end: 20060101
  7. RISPERDAL [Concomitant]
     Dates: start: 20050101
  8. ZYPREXA [Concomitant]
     Dates: start: 20040101, end: 20060101
  9. PHENTERMINE HYDROCHLORIDE [Concomitant]
     Dates: start: 20060228
  10. NAPROXEN [Concomitant]
     Route: 048
     Dates: start: 20060228
  11. METFORMIN HCL [Concomitant]
     Route: 048
     Dates: start: 20060228
  12. LORATADINE [Concomitant]
     Dates: start: 20050217
  13. NEXIUM [Concomitant]
     Dates: start: 20060228
  14. CADUET [Concomitant]
     Dosage: 5 MG - 10 MG
     Route: 048
  15. RANITIDINE [Concomitant]
     Route: 048

REACTIONS (2)
  - DIABETES MELLITUS [None]
  - PANCREATITIS [None]
